FAERS Safety Report 14149046 (Version 1)
Quarter: 2017Q4

REPORT INFORMATION
  Report Type: Report from Study
  Country: SK (occurrence: SK)
  Receive Date: 20171101
  Receipt Date: 20171101
  Transmission Date: 20180321
  Serious: Yes (Hospitalization)
  Sender: FDA-Public Use
  Company Number: SK-ROCHE-1979552

PATIENT
  Age: 34 Year
  Sex: Female
  Weight: 48.2 kg

DRUGS (43)
  1. OCRELIZUMAB. [Suspect]
     Active Substance: OCRELIZUMAB
     Dosage: ON DAY 1 AND DAY 15 OF FIRST 24 WEEK CYCLE FOLLOWED BY DAY 1 OF EACH SUBSEQUENT 24 WEEK CYCLE AS PER
     Route: 042
     Dates: start: 20140325, end: 20140325
  2. METHYLPREDNISOLONE. [Concomitant]
     Active Substance: METHYLPREDNISOLONE
     Route: 065
     Dates: start: 20161006, end: 20161010
  3. BRONCHO-VAXOM [Concomitant]
     Route: 065
     Dates: start: 20170509
  4. PREDNISONE. [Concomitant]
     Active Substance: PREDNISONE
     Route: 065
     Dates: start: 20161116, end: 20161122
  5. PREDNISONE. [Concomitant]
     Active Substance: PREDNISONE
     Route: 065
     Dates: start: 20170628
  6. METHYLPREDNISOLONE. [Concomitant]
     Active Substance: METHYLPREDNISOLONE
     Indication: PREMEDICATION
     Dosage: SUBSEQUENT DOSES RECEIVED ON 07/MAY/2012, 09/OCT/2012, 26/MAR/2013, 10/SEP/2013, 11/MAR/2014, 25/MAR
     Route: 065
     Dates: start: 20120424
  7. AERINASE [Concomitant]
     Route: 065
     Dates: start: 20170503
  8. OMEPRAZOL [Concomitant]
     Active Substance: OMEPRAZOLE
     Route: 065
     Dates: start: 20170517
  9. PREDNISONE. [Concomitant]
     Active Substance: PREDNISONE
     Route: 065
     Dates: start: 20161203, end: 20161207
  10. PLACEBO [Suspect]
     Active Substance: UNSPECIFIED INGREDIENT
     Dosage: ON DAY 1 AND DAY 15 OF FIRST 24 WEEK CYCLE FOLLOWED BY DAY 1 OF EACH SUBSEQUENT 24 WEEK CYCLE AS PER
     Route: 042
     Dates: start: 20120507, end: 20120507
  11. PLACEBO [Suspect]
     Active Substance: UNSPECIFIED INGREDIENT
     Indication: RELAPSING-REMITTING MULTIPLE SCLEROSIS
     Dosage: ON DAY 1 AND DAY 15 OF FIRST 24 WEEK CYCLE FOLLOWED BY DAY 1 OF EACH SUBSEQUENT 24 WEEK CYCLE AS PER
     Route: 042
     Dates: start: 20120424, end: 20120424
  12. METHYLPREDNISOLONE. [Concomitant]
     Active Substance: METHYLPREDNISOLONE
     Route: 065
     Dates: start: 20170411, end: 20170415
  13. PREDNISONE. [Concomitant]
     Active Substance: PREDNISONE
     Route: 065
     Dates: start: 20170516, end: 20170627
  14. METAMIZOL [Concomitant]
     Active Substance: METAMIZOLE SODIUM
     Route: 065
     Dates: start: 20160630, end: 20160704
  15. OCRELIZUMAB. [Suspect]
     Active Substance: OCRELIZUMAB
     Dosage: ON DAY 1 AND DAY 15 OF FIRST 24 WEEK CYCLE FOLLOWED BY DAY 1 OF EACH SUBSEQUENT 24 WEEK CYCLE AS PER
     Route: 042
     Dates: start: 20140826, end: 20140826
  16. CETIRIZIN [Concomitant]
     Active Substance: CETIRIZINE HYDROCHLORIDE
     Indication: PREMEDICATION
     Dosage: SUBSEQUENT DOSES RECEIVED ON 07/MAY/2012, 09/OCT/2012, 26/MAR/2013, 10/SEP/2013, 11/MAR/2014, 25/MAR
     Route: 065
     Dates: start: 20120424
  17. BACLOFEN. [Concomitant]
     Active Substance: BACLOFEN
     Route: 065
     Dates: start: 20170517
  18. KLARITROMYCIN [Concomitant]
     Route: 065
     Dates: start: 20170424, end: 20170502
  19. PREDNISONE. [Concomitant]
     Active Substance: PREDNISONE
     Route: 065
     Dates: start: 20110519, end: 20110601
  20. PREDNISONE. [Concomitant]
     Active Substance: PREDNISONE
     Route: 065
     Dates: start: 20110709, end: 20110814
  21. PREDNISONE. [Concomitant]
     Active Substance: PREDNISONE
     Route: 065
     Dates: start: 20170510, end: 20170515
  22. METAMIZOL [Concomitant]
     Active Substance: METAMIZOLE SODIUM
     Route: 065
     Dates: start: 20170803
  23. INTERFERON BETA-1A [Suspect]
     Active Substance: INTERFERON BETA-1A
     Dosage: DATE OF MOST RECENT DOSE PRIOR TO SAE: 08/MAR/2014
     Route: 058
     Dates: start: 20140225
  24. OCRELIZUMAB. [Suspect]
     Active Substance: OCRELIZUMAB
     Indication: RELAPSING-REMITTING MULTIPLE SCLEROSIS
     Dosage: ON DAY 1 AND DAY 15 OF FIRST 24 WEEK CYCLE FOLLOWED BY DAY 1 OF EACH SUBSEQUENT 24 WEEK CYCLE AS PER
     Route: 042
     Dates: start: 20140311, end: 20140311
  25. METHYLPREDNISOLONE. [Concomitant]
     Active Substance: METHYLPREDNISOLONE
     Route: 065
     Dates: start: 20110516, end: 20110518
  26. METHYLPREDNISOLONE. [Concomitant]
     Active Substance: METHYLPREDNISOLONE
     Route: 065
     Dates: start: 20131008, end: 20131012
  27. BELARA [Concomitant]
     Active Substance: CHLORMADINONE ACETATE\ETHINYL ESTRADIOL
     Route: 065
     Dates: start: 20120419
  28. PREDNISONE. [Concomitant]
     Active Substance: PREDNISONE
     Route: 065
     Dates: start: 20161031, end: 20161115
  29. PREDNISONE. [Concomitant]
     Active Substance: PREDNISONE
     Route: 065
     Dates: start: 20161123, end: 20161127
  30. NOVALGIN [Concomitant]
     Active Substance: METAMIZOLE SODIUM
     Route: 065
     Dates: start: 20160630, end: 20160704
  31. PLACEBO [Suspect]
     Active Substance: UNSPECIFIED INGREDIENT
     Dosage: ON DAY 1 AND DAY 15 OF FIRST 24 WEEK CYCLE FOLLOWED BY DAY 1 OF EACH SUBSEQUENT 24 WEEK CYCLE AS PER
     Route: 042
     Dates: start: 20130326, end: 20130326
  32. VERAL NEO [Concomitant]
  33. BACLOFEN. [Concomitant]
     Active Substance: BACLOFEN
     Route: 065
     Dates: start: 20170419
  34. PREDNISONE. [Concomitant]
     Active Substance: PREDNISONE
     Route: 065
     Dates: start: 20161128, end: 20161202
  35. PREDNISONE. [Concomitant]
     Active Substance: PREDNISONE
     Route: 065
     Dates: start: 20170419, end: 20170509
  36. ESCITALOPRAM [Concomitant]
     Active Substance: ESCITALOPRAM OXALATE
     Route: 065
     Dates: start: 20170517
  37. PREDNISONE. [Concomitant]
     Active Substance: PREDNISONE
     Route: 065
     Dates: start: 20110602, end: 20110623
  38. PREDNISONE. [Concomitant]
     Active Substance: PREDNISONE
     Route: 065
     Dates: start: 20110624, end: 20110708
  39. PREDNISONE. [Concomitant]
     Active Substance: PREDNISONE
     Route: 065
     Dates: start: 20110815, end: 20120501
  40. NOVALGIN [Concomitant]
     Active Substance: METAMIZOLE SODIUM
     Route: 065
     Dates: start: 20170803
  41. INTERFERON BETA-1A [Suspect]
     Active Substance: INTERFERON BETA-1A
     Indication: RELAPSING-REMITTING MULTIPLE SCLEROSIS
     Route: 058
     Dates: start: 20120424
  42. PLACEBO [Suspect]
     Active Substance: UNSPECIFIED INGREDIENT
     Dosage: ON DAY 1 AND DAY 15 OF FIRST 24 WEEK CYCLE FOLLOWED BY DAY 1 OF EACH SUBSEQUENT 24 WEEK CYCLE AS PER
     Route: 042
     Dates: start: 20121009, end: 20121009
  43. PLACEBO [Suspect]
     Active Substance: UNSPECIFIED INGREDIENT
     Dosage: ON DAY 1 AND DAY 15 OF FIRST 24 WEEK CYCLE FOLLOWED BY DAY 1 OF EACH SUBSEQUENT 24 WEEK CYCLE AS PER
     Route: 042
     Dates: start: 20130910, end: 20130910

REACTIONS (1)
  - Chronic sinusitis [Recovered/Resolved]

NARRATIVE: CASE EVENT DATE: 20170606
